FAERS Safety Report 5724866-8 (Version None)
Quarter: 2008Q2

REPORT INFORMATION
  Report Type: 
  Country: None (occurrence: None)
  Receive Date: 20080501
  Receipt Date: 20080417
  Transmission Date: 20081010
  Serious: Yes (Other)
  Sender: FDA-Public Use
  Company Number: DE-BAYER-200816785GPV

PATIENT
  Age: 76 Year
  Sex: Male

DRUGS (6)
  1. ASPIRIN [Suspect]
     Indication: DRUG USE FOR UNKNOWN INDICATION
     Dosage: UNIT DOSE: 100 MG
     Route: 048
     Dates: start: 19940101
  2. MICARDIS [Suspect]
     Indication: HYPERTENSION
     Dosage: UNIT DOSE: 40 MG
     Route: 048
     Dates: start: 20070131
  3. MAINTATE [Concomitant]
     Indication: DRUG USE FOR UNKNOWN INDICATION
     Route: 048
     Dates: start: 19940101
  4. HERBESSER R [Concomitant]
     Indication: DRUG USE FOR UNKNOWN INDICATION
     Route: 048
     Dates: start: 19940101
  5. MEVALOTIN [Concomitant]
     Indication: DRUG USE FOR UNKNOWN INDICATION
     Route: 048
     Dates: start: 19940101
  6. DEPAS [Concomitant]
     Indication: INSOMNIA
     Route: 048
     Dates: start: 19940101

REACTIONS (5)
  - DIVERTICULUM [None]
  - HAEMORRHOIDS [None]
  - LARGE INTESTINE CARCINOMA [None]
  - MELAENA [None]
  - REFLUX OESOPHAGITIS [None]
